FAERS Safety Report 5634183-2 (Version None)
Quarter: 2008Q1

REPORT INFORMATION
  Report Type: 
  Country: None (occurrence: None)
  Receive Date: 20080221
  Receipt Date: 20080221
  Transmission Date: 20080703
  Serious: Yes (Other)
  Sender: FDA-Public Use
  Company Number: None

PATIENT
  Age: 58 Year
  Sex: Male
  Weight: 65.7716 kg

DRUGS (1)
  1. CHANTIX [Suspect]
     Dosage: 1MG ONCE THEN TWICE
     Dates: start: 20080202, end: 20080209

REACTIONS (5)
  - AGGRESSION [None]
  - ANXIETY [None]
  - PALPITATIONS [None]
  - PARANOIA [None]
  - TREMOR [None]
